FAERS Safety Report 24207685 (Version 1)
Quarter: 2024Q3

REPORT INFORMATION
  Report Type: Spontaneous
  Country: FR (occurrence: None)
  Receive Date: 20240814
  Receipt Date: 20240814
  Transmission Date: 20241017
  Serious: Yes (Hospitalization)
  Sender: ASTRAZENECA
  Company Number: 2024A179152

PATIENT
  Age: 65 Year
  Sex: Male

DRUGS (1)
  1. IMFINZI [Suspect]
     Active Substance: DURVALUMAB
     Indication: Small cell lung cancer metastatic
     Dosage: 1500.0MG UNKNOWN
     Dates: start: 20231216, end: 202407

REACTIONS (2)
  - Eosinophilia [Recovered/Resolved]
  - Generalised oedema [Not Recovered/Not Resolved]

NARRATIVE: CASE EVENT DATE: 20231201
